FAERS Safety Report 10475554 (Version 3)
Quarter: 2015Q2

REPORT INFORMATION
  Report Type: Report from Study
  Country: CA (occurrence: CA)
  Receive Date: 20140925
  Receipt Date: 20150417
  Transmission Date: 20150821
  Serious: Yes (Hospitalization, Other)
  Sender: FDA-Public Use
  Company Number: CA-ASTELLAS-2014EU012245

PATIENT
  Age: 20 Year
  Sex: Female
  Weight: 61 kg

DRUGS (65)
  1. VANCOMYCIN [Suspect]
     Active Substance: VANCOMYCIN
     Indication: COLITIS
     Route: 042
     Dates: start: 20140803, end: 20140806
  2. GRAVOL [Concomitant]
     Active Substance: DIMENHYDRINATE
     Indication: PROPHYLAXIS OF NAUSEA AND VOMITING
     Dosage: 25-50-MG-Q4H PRN
     Route: 050
     Dates: start: 20140810, end: 20140828
  3. DIPHENHYDRAMINE [Concomitant]
     Active Substance: DIPHENHYDRAMINE
     Indication: RASH
     Dosage: 50-MG-Q4H AS NEEDED
     Route: 042
     Dates: start: 20140726, end: 20140815
  4. FLAGYL [Concomitant]
     Active Substance: METRONIDAZOLE\METRONIDAZOLE HYDROCHLORIDE
     Indication: NEUTROPENIC COLITIS
     Route: 042
     Dates: start: 20140808, end: 20140813
  5. MEROPENEM. [Concomitant]
     Active Substance: MEROPENEM
     Indication: ANTIBIOTIC PROPHYLAXIS
     Route: 042
     Dates: start: 20140726, end: 20140815
  6. CODEINE [Concomitant]
     Active Substance: CODEINE
     Indication: HEADACHE
  7. SPIRONOLACTONE. [Concomitant]
     Active Substance: SPIRONOLACTONE
     Indication: ASCITES
     Route: 048
     Dates: start: 20140810, end: 20140811
  8. ACYCLOVIR. [Concomitant]
     Active Substance: ACYCLOVIR
     Indication: ANTIVIRAL PROPHYLAXIS
     Route: 048
     Dates: start: 20140731, end: 20140805
  9. LASIX [Concomitant]
     Active Substance: FUROSEMIDE
     Dosage: 20MG-MG-BID
     Route: 042
     Dates: start: 20140810, end: 20140810
  10. METHYLPREDNISOLONE. [Concomitant]
     Active Substance: METHYLPREDNISOLONE
     Indication: RASH
  11. PROCHLORPERAZINE. [Concomitant]
     Active Substance: PROCHLORPERAZINE
     Indication: PROPHYLAXIS OF NAUSEA AND VOMITING
     Dosage: 10-MG-Q4H PRN
     Route: 048
     Dates: start: 20140715, end: 20140817
  12. MORPHINE [Concomitant]
     Active Substance: MORPHINE
     Dosage: 2.5 MG, ONCE
     Route: 042
     Dates: start: 20140803, end: 20140803
  13. MEROPENEM. [Concomitant]
     Active Substance: MEROPENEM
     Route: 042
     Dates: start: 20140815, end: 20140815
  14. ZOPICLONE [Concomitant]
     Active Substance: ZOPICLONE
     Indication: SLEEP DISORDER
     Dosage: 7.5 MG, ONCE
     Route: 048
     Dates: start: 20140803, end: 20140803
  15. URSODIOL. [Concomitant]
     Active Substance: URSODIOL
     Indication: PROPHYLAXIS
     Dosage: 250 AND 500-MG-250 PO AM AND 500 PO PM QD
     Route: 048
     Dates: start: 20140709, end: 20140811
  16. HYDROCORTISONE. [Concomitant]
     Active Substance: HYDROCORTISONE
     Indication: RASH
     Dosage: UNKNOWN-UNKNOWN-BID
     Route: 061
     Dates: start: 20140812, end: 20140818
  17. ATARAX [Concomitant]
     Active Substance: HYDROXYZINE\HYDROXYZINE HYDROCHLORIDE
     Indication: RASH
     Route: 048
     Dates: start: 20140813, end: 20140818
  18. ATARAX [Concomitant]
     Active Substance: HYDROXYZINE\HYDROXYZINE HYDROCHLORIDE
     Indication: GRAFT VERSUS HOST DISEASE
  19. LASIX [Concomitant]
     Active Substance: FUROSEMIDE
     Indication: PLEURAL EFFUSION
     Route: 042
     Dates: start: 20140806, end: 20140806
  20. LASIX [Concomitant]
     Active Substance: FUROSEMIDE
     Route: 042
     Dates: start: 20140808, end: 20140808
  21. BETAMETHASONE [Concomitant]
     Active Substance: BETAMETHASONE
     Indication: RASH
     Dosage: 0.01 %, TWICE DAILY
     Route: 061
     Dates: start: 20140812, end: 20140818
  22. ATIVAN [Concomitant]
     Active Substance: LORAZEPAM
     Indication: NAUSEA
     Dosage: 0.5 MG, ONCE
     Route: 048
     Dates: start: 20140803, end: 20140803
  23. SPIRONOLACTONE. [Concomitant]
     Active Substance: SPIRONOLACTONE
     Indication: FLUID OVERLOAD
     Route: 048
     Dates: start: 20140805, end: 20140807
  24. SPIRONOLACTONE. [Concomitant]
     Active Substance: SPIRONOLACTONE
     Indication: OEDEMA
     Route: 048
     Dates: start: 20140808, end: 20140810
  25. LASIX [Concomitant]
     Active Substance: FUROSEMIDE
     Route: 042
     Dates: start: 20140809, end: 20140809
  26. BETAMETHASONE [Concomitant]
     Active Substance: BETAMETHASONE
     Indication: GRAFT VERSUS HOST DISEASE
  27. MICAFUNGIN [Suspect]
     Active Substance: MICAFUNGIN
     Indication: PROPHYLAXIS
     Route: 042
     Dates: start: 20140814, end: 20140817
  28. MICAFUNGIN [Suspect]
     Active Substance: MICAFUNGIN
     Route: 042
     Dates: start: 20140817, end: 20140819
  29. TACROLIMUS. [Suspect]
     Active Substance: TACROLIMUS
     Indication: PROPHYLAXIS AGAINST GRAFT VERSUS HOST DISEASE
     Dosage: 0.5 MG, PM
     Route: 048
     Dates: start: 20140804, end: 20140805
  30. CODEINE [Concomitant]
     Active Substance: CODEINE
     Indication: PROPHYLAXIS
     Dosage: 30 - 60-MG-Q4H PRN
     Route: 048
     Dates: start: 20140722
  31. ONDANSETRON [Concomitant]
     Active Substance: ONDANSETRON
     Indication: PROPHYLAXIS OF NAUSEA AND VOMITING
     Dosage: 8 MG, Q8H AS NEEDED
     Route: 050
     Dates: start: 20140717, end: 20140815
  32. SENOKOT-S [Concomitant]
     Active Substance: DOCUSATE SODIUM\SENNOSIDES
     Indication: CONSTIPATION PROPHYLAXIS
     Dosage: 1-2-TABLET-BID PRN, AS NEEDED
     Route: 048
     Dates: start: 20140715, end: 20140816
  33. LASIX [Concomitant]
     Active Substance: FUROSEMIDE
     Indication: FLUID OVERLOAD
     Dosage: 20-MG-2 DOSES.
     Route: 042
     Dates: start: 20140805, end: 20140805
  34. LASIX [Concomitant]
     Active Substance: FUROSEMIDE
     Dosage: 20 MG, ONCE
     Route: 042
     Dates: start: 20140807, end: 20140807
  35. LASIX [Concomitant]
     Active Substance: FUROSEMIDE
     Route: 042
     Dates: start: 20140813, end: 20140813
  36. BLINDED FIDAXOMICIN [Suspect]
     Active Substance: FIDAXOMICIN
     Indication: PROPHYLAXIS
     Route: 048
     Dates: start: 20140709, end: 20140724
  37. PANTOPRAZOLE [Concomitant]
     Active Substance: PANTOPRAZOLE SODIUM
     Indication: PROPHYLAXIS
     Route: 048
     Dates: start: 20140725, end: 20140816
  38. CODEINE [Concomitant]
     Active Substance: CODEINE
     Indication: OROPHARYNGEAL PAIN
  39. ONDANSETRON [Concomitant]
     Active Substance: ONDANSETRON
     Indication: NAUSEA
  40. SPIRONOLACTONE. [Concomitant]
     Active Substance: SPIRONOLACTONE
     Route: 048
     Dates: start: 20140810, end: 20140811
  41. SPIRONOLACTONE. [Concomitant]
     Active Substance: SPIRONOLACTONE
     Route: 048
     Dates: start: 20140813, end: 20140813
  42. COLACE [Concomitant]
     Active Substance: DOCUSATE SODIUM
     Indication: CONSTIPATION PROPHYLAXIS
     Dosage: 200 MG, AS NEEDED-BID
     Route: 048
     Dates: start: 20140715, end: 20140816
  43. LASIX [Concomitant]
     Active Substance: FUROSEMIDE
     Route: 042
     Dates: start: 20140811, end: 20140811
  44. HYDROCORTISONE. [Concomitant]
     Active Substance: HYDROCORTISONE
     Indication: GRAFT VERSUS HOST DISEASE
  45. LASIX [Concomitant]
     Active Substance: FUROSEMIDE
     Indication: OEDEMA
     Dosage: 20 MG, ONCE
     Route: 042
     Dates: start: 20140803, end: 20140803
  46. LASIX [Concomitant]
     Active Substance: FUROSEMIDE
  47. DEFIBROTIDE [Concomitant]
     Active Substance: DEFIBROTIDE (BOVINE)
     Indication: VENOOCCLUSIVE DISEASE
     Route: 042
     Dates: start: 20140812, end: 20140829
  48. BLINDED FIDAXOMICIN [Suspect]
     Active Substance: FIDAXOMICIN
     Route: 048
     Dates: start: 20140731, end: 20140803
  49. TACROLIMUS. [Suspect]
     Active Substance: TACROLIMUS
     Dosage: 0.5 MG, TWICE DAILY
     Route: 048
     Dates: start: 20140808, end: 20140814
  50. SECARIS [Concomitant]
     Active Substance: PROPYLENE GLYCOL
     Indication: PROPHYLAXIS
     Dosage: EACH NOSTRIL UNK-QID PRN
     Route: 045
     Dates: start: 20140809, end: 20140809
  51. MORPHINE [Concomitant]
     Active Substance: MORPHINE
     Dosage: 5-MG-Q4H AS NEEDED
     Dates: start: 20140807, end: 20140816
  52. MORPHINE [Concomitant]
     Active Substance: MORPHINE
     Dosage: 5-MG-Q2H PRN
     Route: 042
     Dates: start: 20140813, end: 20140817
  53. ONDANSETRON [Concomitant]
     Active Substance: ONDANSETRON
     Indication: VOMITING
  54. ACYCLOVIR. [Concomitant]
     Active Substance: ACYCLOVIR
     Route: 048
     Dates: start: 20140805, end: 20140815
  55. LASIX [Concomitant]
     Active Substance: FUROSEMIDE
     Route: 042
     Dates: start: 20140813, end: 20140819
  56. TACROLIMUS. [Suspect]
     Active Substance: TACROLIMUS
     Dosage: 0.05 MG, PM
     Route: 048
     Dates: start: 20140804, end: 20140806
  57. TACROLIMUS. [Suspect]
     Active Substance: TACROLIMUS
     Dosage: 1 MG, AM
     Route: 048
     Dates: start: 20140805, end: 20140806
  58. VANCOMYCIN [Suspect]
     Active Substance: VANCOMYCIN
     Indication: NEUTROPENIC COLITIS
     Route: 042
     Dates: start: 20140808, end: 20140813
  59. MORPHINE [Concomitant]
     Active Substance: MORPHINE
     Indication: NEUTROPENIC COLITIS
     Dosage: 2.5-5-MG-Q4H PRN
     Route: 042
     Dates: start: 20140802, end: 20140812
  60. FLUCONAZOLE. [Concomitant]
     Active Substance: FLUCONAZOLE
     Indication: ANTIFUNGAL PROPHYLAXIS
     Dosage: 400-MG-BID
     Route: 042
     Dates: start: 20140725, end: 20140814
  61. LORAZEPAM. [Concomitant]
     Active Substance: LORAZEPAM
     Indication: PROPHYLAXIS OF NAUSEA AND VOMITING
     Dosage: 1-MG-Q8H PRN
     Route: 048
     Dates: start: 20140720
  62. HYDROCORTISONE. [Concomitant]
     Active Substance: HYDROCORTISONE
     Indication: PRURITUS
     Dosage: 1%-UNKNOWN-BID PRN
     Route: 061
     Dates: start: 20140729
  63. DALTEPARIN [Concomitant]
     Active Substance: DALTEPARIN
     Indication: THROMBOSIS PROPHYLAXIS
     Dosage: 5000, ONCE DAILY
     Route: 058
     Dates: start: 20140802, end: 20140807
  64. LASIX [Concomitant]
     Active Substance: FUROSEMIDE
     Indication: ASCITES
     Dosage: 20-MG-2 DOSES
     Route: 042
     Dates: start: 20140804, end: 20140804
  65. METHYLPREDNISOLONE. [Concomitant]
     Active Substance: METHYLPREDNISOLONE
     Indication: GRAFT VERSUS HOST DISEASE
     Route: 042
     Dates: start: 20140813, end: 20140820

REACTIONS (2)
  - Rhabdomyolysis [Recovered/Resolved]
  - Acute kidney injury [Recovered/Resolved]

NARRATIVE: CASE EVENT DATE: 20140815
